FAERS Safety Report 23925527 (Version 1)
Quarter: 2024Q2

REPORT INFORMATION
  Report Type: Spontaneous
  Country: US (occurrence: US)
  Receive Date: 20240531
  Receipt Date: 20240531
  Transmission Date: 20240716
  Serious: No
  Sender: FDA-Public Use
  Company Number: US-PFIZER INC-202400180708

PATIENT
  Age: 45 Year
  Sex: Female
  Weight: 74.84 kg

DRUGS (2)
  1. NURTEC ODT [Suspect]
     Active Substance: RIMEGEPANT SULFATE
     Indication: Migraine
     Dosage: 75 MG (1 TABLET EVERY 2 DAYS)
     Dates: start: 2023, end: 20240510
  2. QULIPTA [Suspect]
     Active Substance: ATOGEPANT

REACTIONS (1)
  - Fatigue [Unknown]
